FAERS Safety Report 4808653-0 (Version None)
Quarter: 2005Q4

REPORT INFORMATION
  Report Type: 
  Country: None (occurrence: None)
  Receive Date: 20051025
  Receipt Date: 20051012
  Transmission Date: 20060501
  Serious: Yes (Hospitalization)
  Sender: FDA-Public Use
  Company Number: US-KINGPHARMUSA00001-K200501350

PATIENT
  Age: 73 Year
  Sex: Female
  Weight: 81 kg

DRUGS (4)
  1. SKELAXIN [Suspect]
     Indication: BACK PAIN
     Dosage: 800 MG, TID
     Route: 048
     Dates: start: 20051006
  2. VANCOMYCIN [Suspect]
     Indication: CELLULITIS
     Dosage: UNK, QD
     Route: 042
     Dates: start: 20050901, end: 20051009
  3. COLACE [Concomitant]
     Indication: PROPHYLAXIS
     Dosage: 100 MG, BID
     Route: 048
  4. MORPHINE [Concomitant]
     Indication: PAIN
     Dosage: 1 MG, PRN
     Route: 042
     Dates: start: 20050901

REACTIONS (3)
  - PRURITUS [None]
  - PYREXIA [None]
  - RASH [None]
